FAERS Safety Report 25738000 (Version 1)
Quarter: 2025Q3

REPORT INFORMATION
  Report Type: Spontaneous
  Country: EU (occurrence: EU)
  Receive Date: 20250829
  Receipt Date: 20250829
  Transmission Date: 20251021
  Serious: Yes (Hospitalization, Other)
  Sender: ALEXION PHARMACEUTICALS
  Company Number: None

PATIENT
  Age: 5 Decade
  Sex: Male
  Weight: 95 kg

DRUGS (1)
  1. DAPAGLIFLOZIN [Suspect]
     Active Substance: DAPAGLIFLOZIN
     Indication: Type 2 diabetes mellitus
     Dosage: 10 MILLIGRAM, QD
     Dates: start: 20240503, end: 20250701

REACTIONS (8)
  - Hypokalaemia [Not Recovered/Not Resolved]
  - Contracted bladder [Recovered/Resolved]
  - Urinary incontinence [Recovered/Resolved]
  - Visual impairment [Recovered/Resolved]
  - Micturition disorder [Recovered/Resolved]
  - Dysuria [Recovering/Resolving]
  - Pollakiuria [Recovered/Resolved]
  - Bladder pain [Recovered/Resolved]

NARRATIVE: CASE EVENT DATE: 20250101
